FAERS Safety Report 8304843-3 (Version None)
Quarter: 2012Q2

REPORT INFORMATION
  Report Type: 
  Country: None (occurrence: None)
  Receive Date: 20120423
  Receipt Date: 20120419
  Transmission Date: 20120825
  Serious: Yes (Hospitalization)
  Sender: FDA-Public Use
  Company Number: US-JNJFOC-20120405433

PATIENT

DRUGS (5)
  1. ZOLPIDEM [Concomitant]
     Indication: INSOMNIA
  2. ACETAMINOPHEN [Suspect]
     Route: 065
  3. ACETAMINOPHEN [Suspect]
     Indication: PRODUCT USED FOR UNKNOWN INDICATION
     Route: 065
  4. BENZODIAZEPINE NOS [Concomitant]
     Indication: ANXIETY
     Dosage: UP TO LORAZEPAM 6 MG DAILY OR ITS EQUIVALENT
  5. STUDY MEDICATION [Suspect]
     Indication: PRODUCT USED FOR UNKNOWN INDICATION
     Route: 048

REACTIONS (3)
  - INTENTIONAL OVERDOSE [None]
  - HEPATOTOXICITY [None]
  - SUICIDE ATTEMPT [None]
